FAERS Safety Report 19984652 (Version 1)
Quarter: 2021Q4

REPORT INFORMATION
  Report Type: Report from Study
  Country: CA (occurrence: CA)
  Receive Date: 20211021
  Receipt Date: 20211021
  Transmission Date: 20220304
  Serious: Yes (Other)
  Sender: FDA-Public Use
  Company Number: CA-TAKEDA-2020TUS022349

PATIENT
  Age: 69 Year
  Sex: Female

DRUGS (12)
  1. IXAZOMIB [Suspect]
     Active Substance: IXAZOMIB
     Indication: Plasma cell myeloma
     Dosage: 4 MILLIGRAM, Q2WEEKS
     Route: 048
     Dates: start: 20180505
  2. DEXAMETHASONE [Suspect]
     Active Substance: DEXAMETHASONE
     Indication: Plasma cell myeloma
     Dosage: 8 MILLIGRAM, Q2WEEKS
     Route: 048
     Dates: start: 20180515
  3. ACYCLOVIR [Concomitant]
     Active Substance: ACYCLOVIR
     Dosage: 400 MILLIGRAM, BID
     Route: 065
     Dates: start: 20180515
  4. SEPTRA DS [Concomitant]
     Active Substance: SULFAMETHOXAZOLE\TRIMETHOPRIM
     Indication: Prophylaxis
     Dosage: UNK UNK, BID
     Route: 065
     Dates: start: 20180515
  5. PANTOPRAZOLE [Concomitant]
     Active Substance: PANTOPRAZOLE
     Dosage: 40 MILLIGRAM, QD
     Route: 065
  6. ONDANSETRON [Concomitant]
     Active Substance: ONDANSETRON
     Dosage: UNK
  7. HYDROCODONE [Concomitant]
     Active Substance: HYDROCODONE
     Dosage: UNK
  8. HYLO [Concomitant]
     Indication: Dry eye
     Dosage: UNK
  9. LORAZEPAM [Concomitant]
     Active Substance: LORAZEPAM
     Indication: Sleep disorder
     Dosage: 0.5 MILLIGRAM, QD
  10. TYLENOL [Concomitant]
     Active Substance: ACETAMINOPHEN
     Indication: Headache
     Dosage: 500 MILLIGRAM
  11. VITAMIN D NOS [Concomitant]
     Active Substance: VITAMIN D NOS
     Dosage: UNK UNK, QD
  12. ZOPICLONE [Concomitant]
     Active Substance: ZOPICLONE
     Indication: Sleep disorder
     Dosage: 5 MILLIGRAM, QD

REACTIONS (14)
  - Cough [Not Recovered/Not Resolved]
  - Chest discomfort [Unknown]
  - Intercostal neuralgia [Unknown]
  - Oral candidiasis [Recovered/Resolved]
  - Gastrooesophageal reflux disease [Unknown]
  - Food poisoning [Unknown]
  - Gastrointestinal motility disorder [Not Recovered/Not Resolved]
  - Abdominal pain [Unknown]
  - Hyperhidrosis [Unknown]
  - Constipation [Not Recovered/Not Resolved]
  - Hypoaesthesia [Unknown]
  - Rash macular [Recovered/Resolved]
  - Diarrhoea [Recovered/Resolved]
  - Tremor [Not Recovered/Not Resolved]

NARRATIVE: CASE EVENT DATE: 20210928
